FAERS Safety Report 17026362 (Version 1)
Quarter: 2019Q4

REPORT INFORMATION
  Report Type: Spontaneous
  Country: US (occurrence: US)
  Receive Date: 20191113
  Receipt Date: 20191113
  Transmission Date: 20200122
  Serious: Yes (Other)
  Sender: FDA-Public Use
  Company Number: US-AMGEN-USASP2019184924

PATIENT

DRUGS (1)
  1. REPATHA [Suspect]
     Active Substance: EVOLOCUMAB
     Indication: PRODUCT USED FOR UNKNOWN INDICATION
     Dosage: UNK
     Route: 065

REACTIONS (12)
  - Cataract [Unknown]
  - Blood pressure increased [Unknown]
  - Dizziness [Unknown]
  - Panic attack [Unknown]
  - Mental impairment [Unknown]
  - Feeling abnormal [Unknown]
  - Anxiety [Unknown]
  - Blood magnesium decreased [Unknown]
  - Dysphagia [Unknown]
  - Aphasia [Unknown]
  - Secretion discharge [Unknown]
  - Dyspnoea [Unknown]
